FAERS Safety Report 8538642 (Version 2)
Quarter: 2014Q2

REPORT INFORMATION
  Report Type: Spontaneous
  Country: US (occurrence: US)
  Receive Date: 20120501
  Receipt Date: 20140414
  Transmission Date: 20141212
  Serious: Yes (Hospitalization)
  Sender: FDA-Public Use
  Company Number: US-GLAXOSMITHKLINE-A0975596A

PATIENT
  Age: 44 Year
  Sex: Male

DRUGS (1)
  1. PROMACTA [Suspect]
     Indication: HAEMORRHAGIC DISORDER
     Dosage: 50MG UNKNOWN
     Route: 065
     Dates: start: 20100504

REACTIONS (4)
  - Yellow skin [Unknown]
  - Platelet count decreased [Unknown]
  - Pyrexia [Unknown]
  - Infection [Unknown]
